FAERS Safety Report 10215668 (Version 1)
Quarter: 2014Q2

REPORT INFORMATION
  Report Type: Spontaneous
  Country: US (occurrence: None)
  Receive Date: 20140603
  Receipt Date: 20140603
  Transmission Date: 20141212
  Serious: Yes (Other)
  Sender: FDA-Public Use
  Company Number: None

PATIENT
  Age: 58 Year
  Sex: Female
  Weight: 77.1 kg

DRUGS (5)
  1. VANCOMYCIN 1GM + 5GM [Suspect]
     Indication: TENOSYNOVITIS
     Route: 042
  2. VANCOMYCIN 1GM + 5GM [Suspect]
     Indication: ANIMAL BITE
     Route: 042
  3. VANCOMYCIN 5 GM [Suspect]
     Indication: ANIMAL BITE
     Route: 042
  4. VANCOMYCIN 5 GM [Suspect]
     Indication: INFECTION
     Route: 042
  5. CEFTRIAXONE [Concomitant]

REACTIONS (1)
  - Rash [None]
